FAERS Safety Report 8213553 (Version 2)
Quarter: 2012Q4

REPORT INFORMATION
  Report Type: 
  Country: US (occurrence: US)
  Receive Date: 20111030
  Receipt Date: 20121129
  Transmission Date: 20130627
  Serious: Yes (Other)
  Sender: FDA-Public Use
  Company Number: US-AMGEN-USASP2011021711

PATIENT
  Age: 58 Year
  Sex: Female

DRUGS (3)
  1. ENBREL [Suspect]
     Indication: JUVENILE ARTHRITIS
     Dosage: 50 mg, qwk
     Dates: start: 2009, end: 2010
  2. ENBREL [Suspect]
     Indication: RHEUMATOID ARTHRITIS
  3. ORENCIA [Concomitant]
     Dosage: UNK

REACTIONS (2)
  - Partial seizures [Not Recovered/Not Resolved]
  - Arthritis [Not Recovered/Not Resolved]
